FAERS Safety Report 25059361 (Version 1)
Quarter: 2025Q1

REPORT INFORMATION
  Report Type: Spontaneous
  Country: US (occurrence: None)
  Receive Date: 20250308
  Receipt Date: 20250308
  Transmission Date: 20250408
  Serious: Yes (Hospitalization, Disabling)
  Sender: FDA-CTU
  Company Number: None

PATIENT
  Age: 22 Year
  Sex: Female
  Weight: 56.25 kg

DRUGS (1)
  1. SPIRONOLACTONE [Suspect]
     Active Substance: SPIRONOLACTONE
     Indication: Acne
     Dosage: DAILY ORAL ?
     Route: 048
     Dates: start: 20240401, end: 20250301

REACTIONS (7)
  - Gastrooesophageal reflux disease [None]
  - Oesophagitis [None]
  - Chest pain [None]
  - Back pain [None]
  - Pain in extremity [None]
  - Dyspepsia [None]
  - Cough [None]

NARRATIVE: CASE EVENT DATE: 20250305
